FAERS Safety Report 15880627 (Version 1)
Quarter: 2019Q1

REPORT INFORMATION
  Report Type: Spontaneous
  Country: IN (occurrence: IN)
  Receive Date: 20190128
  Receipt Date: 20190128
  Transmission Date: 20190417
  Serious: Yes (Other)
  Sender: FDA-Public Use
  Company Number: IN-UNICHEM PHARMACEUTICALS (USA) INC-UCM201901-000022

PATIENT
  Age: 45 Year
  Sex: Female

DRUGS (7)
  1. GLIMEPIRIDE. [Suspect]
     Active Substance: GLIMEPIRIDE
  2. AMLODIPINE BESYLATE 5MG TABLETS [Suspect]
     Active Substance: AMLODIPINE BESYLATE
     Route: 048
  3. AMLODIPINE BESYLATE 5MG TABLETS [Suspect]
     Active Substance: AMLODIPINE BESYLATE
     Dosage: 10 TABLETS
  4. TELMISARTAN. [Suspect]
     Active Substance: TELMISARTAN
  5. ALPRAZOLAM. [Suspect]
     Active Substance: ALPRAZOLAM
  6. METFORMIN [Suspect]
     Active Substance: METFORMIN HYDROCHLORIDE
  7. LEVOTHYROXINE. [Suspect]
     Active Substance: LEVOTHYROXINE

REACTIONS (14)
  - Bradycardia [Recovering/Resolving]
  - Somnolence [Recovering/Resolving]
  - Overdose [Unknown]
  - Oxygen saturation decreased [Recovering/Resolving]
  - Vomiting [Recovering/Resolving]
  - Muscle rigidity [Recovering/Resolving]
  - Pulse abnormal [Recovering/Resolving]
  - Hypotension [Recovering/Resolving]
  - Poisoning [Recovering/Resolving]
  - Hyperhidrosis [Recovering/Resolving]
  - Oliguria [Recovering/Resolving]
  - Loss of consciousness [Recovering/Resolving]
  - Suicide attempt [Unknown]
  - Seizure [Recovering/Resolving]
